FAERS Safety Report 14725611 (Version 3)
Quarter: 2019Q4

REPORT INFORMATION
  Report Type: Report from Study
  Country: JP (occurrence: JP)
  Receive Date: 20180406
  Receipt Date: 20191014
  Transmission Date: 20200122
  Serious: Yes (Other)
  Sender: FDA-Public Use
  Company Number: JP-AMGEN-JPNCT2016054478

PATIENT
  Sex: Male
  Weight: 67.6 kg

DRUGS (20)
  1. OXALIPLATIN. [Concomitant]
     Active Substance: OXALIPLATIN
     Dosage: 65 MILLIGRAM/SQ. METER, Q2WK
     Route: 041
     Dates: start: 20151023, end: 20151218
  2. CALCIUM LEVOFOLINATE [Concomitant]
     Active Substance: LEVOLEUCOVORIN CALCIUM
     Dosage: UNK, Q2WK
     Route: 041
     Dates: start: 20151023, end: 20151218
  3. CALCIUM LEVOFOLINATE [Concomitant]
     Active Substance: LEVOLEUCOVORIN CALCIUM
     Dosage: UNK, Q2WEEKS
     Route: 041
     Dates: start: 20160115, end: 20160408
  4. 5-FU [FLUOROURACIL] [Concomitant]
     Active Substance: FLUOROURACIL
     Indication: RECTOSIGMOID CANCER
     Dosage: 700 MILLIGRAM, Q2WK
     Route: 040
     Dates: start: 20150911, end: 20151009
  5. PANITUMUMAB [Suspect]
     Active Substance: PANITUMUMAB
     Indication: RECTOSIGMOID CANCER
     Dosage: 400 MILLIGRAM, Q2WK
     Route: 041
     Dates: start: 20150911, end: 20151218
  6. 5-FU [FLUOROURACIL] [Concomitant]
     Active Substance: FLUOROURACIL
     Dosage: 4200 MILLIGRAM, Q2WK
     Route: 041
     Dates: start: 20150911, end: 20151009
  7. OXALIPLATIN. [Concomitant]
     Active Substance: OXALIPLATIN
     Dosage: 65 MILLIGRAM/SQ. METER, Q2WK
     Route: 041
     Dates: start: 20160115, end: 20160226
  8. 5-FU [FLUOROURACIL] [Concomitant]
     Active Substance: FLUOROURACIL
     Dosage: 200 MILLIGRAM/SQ. METER, Q2WK
     Route: 040
     Dates: start: 20160506, end: 20161125
  9. 5-FU [FLUOROURACIL] [Concomitant]
     Active Substance: FLUOROURACIL
     Dosage: 2000 MILLIGRAM/SQ. METER, Q2WK
     Route: 041
     Dates: start: 20160506, end: 20161125
  10. 5-FU [FLUOROURACIL] [Concomitant]
     Active Substance: FLUOROURACIL
     Dosage: UNK
     Route: 040
     Dates: start: 20161216, end: 20180209
  11. OXALIPLATIN. [Concomitant]
     Active Substance: OXALIPLATIN
     Indication: RECTOSIGMOID CANCER
     Dosage: 140 MILLIGRAM, Q2WK
     Route: 041
     Dates: start: 20150911, end: 20151009
  12. 5-FU [FLUOROURACIL] [Concomitant]
     Active Substance: FLUOROURACIL
     Dosage: 2000 MILLIGRAM/SQ. METER, Q2WK
     Route: 040
     Dates: start: 20160115, end: 20160408
  13. CALCIUM LEVOFOLINATE [Concomitant]
     Active Substance: LEVOLEUCOVORIN CALCIUM
     Indication: RECTOSIGMOID CANCER
     Dosage: 350 MILLIGRAM, Q2WK
     Route: 041
     Dates: start: 20150911, end: 20151009
  14. CALCIUM LEVOFOLINATE [Concomitant]
     Active Substance: LEVOLEUCOVORIN CALCIUM
     Dosage: UNK, Q2WEEKS
     Route: 041
     Dates: start: 20160506, end: 20161125
  15. 5-FU [FLUOROURACIL] [Concomitant]
     Active Substance: FLUOROURACIL
     Dosage: UNK
     Route: 041
     Dates: start: 20161216, end: 20180209
  16. PANITUMUMAB [Suspect]
     Active Substance: PANITUMUMAB
     Dosage: 4.8 MILLIGRAM/KILOGRAM, Q2WK
     Route: 041
     Dates: start: 20160603, end: 20161007
  17. 5-FU [FLUOROURACIL] [Concomitant]
     Active Substance: FLUOROURACIL
     Dosage: 200 MILLIGRAM/SQ. METER, Q2WK
     Route: 040
     Dates: start: 20151023, end: 20151218
  18. 5-FU [FLUOROURACIL] [Concomitant]
     Active Substance: FLUOROURACIL
     Dosage: 200 MILLIGRAM/SQ. METER, Q2WK
     Route: 041
     Dates: start: 20151023, end: 20151218
  19. 5-FU [FLUOROURACIL] [Concomitant]
     Active Substance: FLUOROURACIL
     Dosage: 2000 MILLIGRAM/SQ. METER, Q2WK
     Route: 041
     Dates: start: 20160115, end: 20160408
  20. PANITUMUMAB [Suspect]
     Active Substance: PANITUMUMAB
     Dosage: 400 MILLIGRAM, Q2WK
     Route: 041
     Dates: start: 20160115, end: 20160408

REACTIONS (16)
  - Hyperkalaemia [Recovered/Resolved]
  - Taste disorder [Recovered/Resolved]
  - Embolism [Recovered/Resolved]
  - Dermatitis acneiform [Not Recovered/Not Resolved]
  - Dry skin [Recovered/Resolved]
  - Malaise [Recovered/Resolved]
  - Palpitations [Recovered/Resolved]
  - Anaemia [Not Recovered/Not Resolved]
  - Aspartate aminotransferase increased [Recovered/Resolved]
  - Angiopathy [Recovered/Resolved]
  - Fatigue [Recovered/Resolved]
  - Hypomagnesaemia [Recovered/Resolved]
  - Peripheral sensory neuropathy [Not Recovered/Not Resolved]
  - Paronychia [Recovered/Resolved]
  - Vertigo [Recovered/Resolved]
  - Neutrophil count decreased [Recovered/Resolved]
